FAERS Safety Report 12368420 (Version 1)
Quarter: 2016Q2

REPORT INFORMATION
  Report Type: Spontaneous
  Country: SE (occurrence: SE)
  Receive Date: 20160513
  Receipt Date: 20160513
  Transmission Date: 20160815
  Serious: Yes (Other)
  Sender: FDA-Public Use
  Company Number: SE-009507513-2011SP054031

PATIENT
  Sex: Female

DRUGS (3)
  1. CALCICHEW [Concomitant]
     Active Substance: CALCIUM CARBONATE
     Indication: PRODUCT USED FOR UNKNOWN INDICATION
     Dosage: UNK UNK, QD
  2. BEHEPAN [Concomitant]
     Active Substance: HYDROXOCOBALAMIN
     Indication: PRODUCT USED FOR UNKNOWN INDICATION
     Dosage: UNK UNK, QD
  3. DIPRODERM [Suspect]
     Active Substance: BETAMETHASONE DIPROPIONATE
     Indication: EAR DISORDER
     Dosage: ONE PIPETTE TWICE DIALY FOR 5 DAYS, THEN ONE PIPETTE ONCE DAILY FOR 5 DAYS
     Dates: start: 20111024, end: 20111103

REACTIONS (3)
  - Hypoacusis [Not Recovered/Not Resolved]
  - Ear pain [Not Recovered/Not Resolved]
  - Tympanic membrane perforation [Not Recovered/Not Resolved]

NARRATIVE: CASE EVENT DATE: 20111024
